FAERS Safety Report 10776113 (Version 1)
Quarter: 2015Q1

REPORT INFORMATION
  Report Type: Spontaneous
  Country: US (occurrence: US)
  Receive Date: 20150209
  Receipt Date: 20150209
  Transmission Date: 20150721
  Serious: Yes (Other)
  Sender: FDA-Public Use
  Company Number: US-PFIZER INC-2015046609

PATIENT
  Age: 52 Year
  Sex: Female

DRUGS (2)
  1. NEURONTIN [Suspect]
     Active Substance: GABAPENTIN
     Indication: DEPRESSION
  2. NEURONTIN [Suspect]
     Active Substance: GABAPENTIN
     Indication: NEURALGIA
     Dosage: 600 MG, 2X/DAY

REACTIONS (6)
  - Limb injury [Unknown]
  - Rash [Unknown]
  - Teeth brittle [Unknown]
  - Product use issue [Unknown]
  - Osteopenia [Unknown]
  - Bone loss [Unknown]

NARRATIVE: CASE EVENT DATE: 201407
